FAERS Safety Report 8075769-8 (Version None)
Quarter: 2012Q1

REPORT INFORMATION
  Report Type: 
  Country: None (occurrence: None)
  Receive Date: 20120127
  Receipt Date: 20120124
  Transmission Date: 20120608
  Serious: Yes (Other)
  Sender: FDA-Public Use
  Company Number: US-BAYER-2011-100987

PATIENT
  Age: 41 Year
  Sex: Male
  Weight: 81.179 kg

DRUGS (2)
  1. BETASERON [Suspect]
     Indication: MULTIPLE SCLEROSIS
     Dosage: 8 MIU, QOD
     Route: 058
     Dates: start: 20021127
  2. ACETAMINOPHEN [Concomitant]

REACTIONS (6)
  - RENAL IMPAIRMENT [None]
  - RENAL FAILURE [None]
  - HYPERTENSION [None]
  - FATIGUE [None]
  - ARTHRALGIA [None]
  - PYREXIA [None]
